FAERS Safety Report 4348986-8 (Version None)
Quarter: 2004Q2

REPORT INFORMATION
  Report Type: 
  Country: None (occurrence: None)
  Receive Date: 20040428
  Receipt Date: 20040420
  Transmission Date: 20050107
  Serious: Yes (Death, Hospitalization)
  Sender: FDA-Public Use
  Company Number: FR-BRISTOL-MYERS SQUIBB COMPANY-12565883

PATIENT
  Age: 34 Year
  Sex: Male
  Weight: 70 kg

DRUGS (3)
  1. SUSTIVA [Suspect]
     Indication: HIV INFECTION
     Route: 048
     Dates: start: 20000501, end: 20040302
  2. COMBIVIR [Suspect]
     Indication: HIV INFECTION
     Route: 048
     Dates: start: 20000501, end: 20040302
  3. SUBUTEX [Suspect]
     Indication: DRUG DEPENDENCE
     Dosage: SUBLINGUAL TABLETS
     Dates: end: 20040302

REACTIONS (6)
  - CARDIOGENIC SHOCK [None]
  - DRUG ABUSER [None]
  - INTRACARDIAC THROMBUS [None]
  - MYOCARDIAL INFARCTION [None]
  - PNEUMONIA BACTERIAL [None]
  - VENTRICULAR FIBRILLATION [None]
